FAERS Safety Report 21107640 (Version 3)
Quarter: 2023Q2

REPORT INFORMATION
  Report Type: Spontaneous
  Country: IT (occurrence: IT)
  Receive Date: 20220720
  Receipt Date: 20230531
  Transmission Date: 20230722
  Serious: Yes (Death, Other)
  Sender: FDA-Public Use
  Company Number: IT-GILEAD-2022-0589995

PATIENT
  Age: 22 Year
  Sex: Female

DRUGS (2)
  1. YESCARTA [Suspect]
     Active Substance: AXICABTAGENE CILOLEUCEL
     Indication: Primary mediastinal large B-cell lymphoma
     Dosage: UNK
     Route: 042
     Dates: start: 20220711, end: 20220711
  2. TOCILIZUMAB [Concomitant]
     Active Substance: TOCILIZUMAB

REACTIONS (4)
  - Brain oedema [Fatal]
  - Disease progression [Unknown]
  - Immune effector cell-associated neurotoxicity syndrome [Fatal]
  - Cytokine release syndrome [Unknown]
